FAERS Safety Report 22651560 (Version 1)
Quarter: 2023Q2

REPORT INFORMATION
  Report Type: Spontaneous
  Country: US (occurrence: US)
  Receive Date: 20230628
  Receipt Date: 20230628
  Transmission Date: 20230721
  Serious: No
  Sender: FDA-Public Use
  Company Number: US-PFIZER INC-202300228557

PATIENT
  Sex: Female

DRUGS (2)
  1. XELJANZ XR [Interacting]
     Active Substance: TOFACITINIB CITRATE
     Dosage: UNK
  2. NAPROXEN [Interacting]
     Active Substance: NAPROXEN
     Indication: Pain
     Dosage: UNK

REACTIONS (2)
  - Drug interaction [Unknown]
  - Muscle spasms [Unknown]
